FAERS Safety Report 6298839-3 (Version None)
Quarter: 2009Q3

REPORT INFORMATION
  Report Type: 
  Country: None (occurrence: None)
  Receive Date: 20090805
  Receipt Date: 20090805
  Transmission Date: 20100115
  Serious: Yes (Other)
  Sender: FDA-Public Use
  Company Number: None

PATIENT
  Age: 30 Year
  Sex: Male
  Weight: 103 kg

DRUGS (2)
  1. FELBAMATE. 400MG UNKNOWN. [Suspect]
     Indication: EPILEPSY
     Dosage: 1200MG/DAY BID ORAL
     Route: 048
     Dates: start: 20070314, end: 20070502
  2. TRILEPTAL [Suspect]
     Indication: EPILEPSY
     Dosage: 1200MG/DAY BID ORAL
     Route: 048
     Dates: start: 20040901, end: 20041204

REACTIONS (10)
  - ABDOMINAL PAIN UPPER [None]
  - COGNITIVE DISORDER [None]
  - CONDITION AGGRAVATED [None]
  - CONVULSION [None]
  - DARK CIRCLES UNDER EYES [None]
  - DIZZINESS [None]
  - FATIGUE [None]
  - SOMNOLENCE [None]
  - VISION BLURRED [None]
  - WEIGHT INCREASED [None]
